FAERS Safety Report 7116258-4 (Version None)
Quarter: 2010Q4

REPORT INFORMATION
  Report Type: 
  Country: None (occurrence: None)
  Receive Date: 20101122
  Receipt Date: 20101111
  Transmission Date: 20110411
  Serious: Yes (Hospitalization)
  Sender: FDA-Public Use
  Company Number: AR-JNJFOC-20101104263

PATIENT
  Sex: Female
  Weight: 62 kg

DRUGS (12)
  1. GOLIMUMAB [Suspect]
     Route: 058
  2. GOLIMUMAB [Suspect]
     Indication: RHEUMATOID ARTHRITIS
     Route: 058
  3. PLACEBO [Suspect]
     Indication: RHEUMATOID ARTHRITIS
     Route: 048
  4. DELTISONA B (MEPREDNISONE) [Concomitant]
     Route: 048
  5. INDOTEC [Concomitant]
     Route: 054
  6. FOLIC ACID [Concomitant]
     Route: 048
  7. ARTRAIT [Concomitant]
     Route: 048
  8. ARTRAIT [Concomitant]
     Route: 048
  9. ARTRAIT [Concomitant]
     Route: 048
  10. ARTRAIT [Concomitant]
     Route: 048
  11. LEVOTHYROXINE [Concomitant]
     Route: 048
  12. METHOTREXATE [Concomitant]
     Route: 048

REACTIONS (1)
  - PNEUMONIA [None]
